FAERS Safety Report 8604282 (Version 2)
Quarter: 2012Q4

REPORT INFORMATION
  Report Type: 
  Country: US (occurrence: US)
  Receive Date: 20120608
  Receipt Date: 20120904
  Transmission Date: 20130627
  Serious: Yes (Other)
  Sender: FDA-Public Use
  Company Number: US-PFIZER INC-2012134093

PATIENT
  Age: 62 Year
  Sex: Female

DRUGS (2)
  1. LYRICA [Suspect]
     Indication: PAIN
     Dosage: 150 mg, 2x/day
     Route: 048
     Dates: start: 200608, end: 200811
  2. NEURONTIN [Suspect]
     Indication: PAIN
     Dosage: 300 mg, 4x/day
     Route: 048
     Dates: start: 200601, end: 201108

REACTIONS (7)
  - Arthralgia [Recovered/Resolved]
  - Back pain [Recovered/Resolved]
  - Intervertebral disc protrusion [Recovered/Resolved]
  - Depression [Not Recovered/Not Resolved]
  - Hypersensitivity [Unknown]
  - Fatigue [Unknown]
  - Insomnia [Not Recovered/Not Resolved]
